FAERS Safety Report 24761753 (Version 1)
Quarter: 2024Q4

REPORT INFORMATION
  Report Type: Spontaneous
  Country: US (occurrence: US)
  Receive Date: 20241220
  Receipt Date: 20241220
  Transmission Date: 20250115
  Serious: Yes (Death, Other)
  Sender: ALEXION PHARMACEUTICALS
  Company Number: US-ASTRAZENECA-202412USA016397US

PATIENT
  Age: 79 Year

DRUGS (10)
  1. SEROQUEL [Suspect]
     Active Substance: QUETIAPINE FUMARATE
  2. SEROQUEL [Suspect]
     Active Substance: QUETIAPINE FUMARATE
  3. AMLODIPINE [Suspect]
     Active Substance: AMLODIPINE BESYLATE
  4. MIRTAZAPINE [Suspect]
     Active Substance: MIRTAZAPINE
  5. FERROUS SULFATE [Suspect]
     Active Substance: FERROUS SULFATE
  6. CLOPIDOGREL [Suspect]
     Active Substance: CLOPIDOGREL BISULFATE
  7. FUROSEMIDE [Suspect]
     Active Substance: FUROSEMIDE
  8. CETIRIZINE [Suspect]
     Active Substance: CETIRIZINE HYDROCHLORIDE
  9. SIMVASTATIN [Suspect]
     Active Substance: SIMVASTATIN
  10. OMEPRAZOLE [Suspect]
     Active Substance: OMEPRAZOLE

REACTIONS (2)
  - Toxicity to various agents [Fatal]
  - Completed suicide [Fatal]
